FAERS Safety Report 7601418-6 (Version None)
Quarter: 2011Q3

REPORT INFORMATION
  Report Type: 
  Country: None (occurrence: None)
  Receive Date: 20110711
  Receipt Date: 20110630
  Transmission Date: 20111222
  Serious: Yes (Hospitalization)
  Sender: FDA-Public Use
  Company Number: JP-MERCK-1107USA00385

PATIENT
  Age: 49 Year
  Sex: Male

DRUGS (6)
  1. ACTOS [Concomitant]
     Indication: DIABETES MELLITUS
     Route: 048
     Dates: start: 20090116
  2. LIVALO [Concomitant]
     Indication: DYSLIPIDAEMIA
     Dosage: DOSAGE WAS UNCERTAIN DURING A DAY
     Route: 048
  3. JANUVIA [Suspect]
     Indication: DIABETES MELLITUS
     Route: 048
     Dates: start: 20110323, end: 20110511
  4. ALLOPURINOL [Concomitant]
     Indication: GOUT
     Dosage: DOSAGE WAS UNCERTAIN DURING A DAY
     Route: 048
  5. GLYCORAN [Concomitant]
     Indication: DIABETES MELLITUS
     Route: 048
     Dates: start: 20070701
  6. AMARYL [Concomitant]
     Indication: DIABETES MELLITUS
     Route: 048
     Dates: start: 20110423

REACTIONS (1)
  - ILEUS [None]
